FAERS Safety Report 18391976 (Version 4)
Quarter: 2020Q4

REPORT INFORMATION
  Report Type: Report from Study
  Country: US (occurrence: US)
  Receive Date: 20201016
  Receipt Date: 20201125
  Transmission Date: 20210114
  Serious: No
  Sender: FDA-Public Use
  Company Number: US-DSJP-DSU-2020-129491

PATIENT
  Sex: Male

DRUGS (1)
  1. PEXIDARTINIB [Suspect]
     Active Substance: PEXIDARTINIB
     Indication: SYNOVITIS
     Dosage: 200MG QAM, 400MG QPM, BID
     Route: 048
     Dates: start: 20200929

REACTIONS (5)
  - Hunger [Not Recovered/Not Resolved]
  - Swelling face [Not Recovered/Not Resolved]
  - Laboratory test abnormal [Recovered/Resolved]
  - Pain [Not Recovered/Not Resolved]
  - Liver disorder [Recovered/Resolved]

NARRATIVE: CASE EVENT DATE: 2020
